FAERS Safety Report 14731413 (Version 1)
Quarter: 2018Q2

REPORT INFORMATION
  Report Type: Other
  Country: GB (occurrence: GB)
  Receive Date: 20180407
  Receipt Date: 20180407
  Transmission Date: 20180711
  Serious: Yes (Other)
  Sender: FDA-Public Use
  Company Number: GB-DENTSPLY-2018SCDP000036

PATIENT
  Age: 20 Year
  Sex: Male
  Weight: 60 kg

DRUGS (1)
  1. XYLOCAINE WITH EPINEPHRINE [Suspect]
     Active Substance: EPINEPHRINE BITARTRATE\LIDOCAINE HYDROCHLORIDE
     Indication: DENTAL OPERATION
     Dosage: 2 ML, UNK
     Route: 004

REACTIONS (7)
  - Palpitations [Unknown]
  - Memory impairment [Unknown]
  - Confusional state [Unknown]
  - Dizziness [Unknown]
  - Diplopia [Unknown]
  - Anxiety [Unknown]
  - Somnolence [Unknown]
